FAERS Safety Report 10188484 (Version 1)
Quarter: 2014Q2

REPORT INFORMATION
  Report Type: Spontaneous
  Country: US (occurrence: US)
  Receive Date: 20140522
  Receipt Date: 20140522
  Transmission Date: 20141212
  Serious: No
  Sender: FDA-Public Use
  Company Number: US-SA-2014SA050198

PATIENT
  Sex: Female

DRUGS (5)
  1. LANTUS SOLOSTAR [Suspect]
     Indication: TYPE 2 DIABETES MELLITUS
     Dosage: DOSE:110 UNIT(S)
     Route: 058
     Dates: start: 2012
  2. LANTUS SOLOSTAR [Suspect]
     Indication: TYPE 2 DIABETES MELLITUS
     Dosage: DOSE:20 UNIT(S)
     Route: 058
  3. SOLOSTAR [Concomitant]
     Indication: DEVICE THERAPY
     Dates: start: 2012
  4. SOLOSTAR [Concomitant]
     Indication: DEVICE THERAPY
     Dosage: LOT# 3F013A,EXP. 05-2016.
  5. BYETTA [Concomitant]
     Indication: DIABETES MELLITUS

REACTIONS (3)
  - Urinary incontinence [Recovered/Resolved]
  - Rash pruritic [Unknown]
  - Blood glucose increased [Not Recovered/Not Resolved]
